FAERS Safety Report 8640976 (Version 3)
Quarter: 2012Q4

REPORT INFORMATION
  Report Type: 
  Country: IT (occurrence: IT)
  Receive Date: 20120628
  Receipt Date: 20120924
  Transmission Date: 20130627
  Serious: Yes (Hospitalization)
  Sender: FDA-Public Use
  Company Number: PHHO2012IT009374

PATIENT
  Age: 61 Year
  Sex: Female

DRUGS (4)
  1. CGS 20267 [Suspect]
     Indication: BREAST CANCER
     Dosage: 2.5 mg, QD
     Route: 048
     Dates: start: 20090401, end: 20120525
  2. CALCIUM CARBONATE [Concomitant]
     Dosage: 1000 mg, UNK
     Route: 048
     Dates: start: 2006
  3. VITAMIN D [Concomitant]
     Dosage: 880 IU, UNK
     Route: 048
     Dates: start: 2006
  4. BROTIZOLAM [Concomitant]
     Dosage: 0.25 mg, UNK
     Route: 048
     Dates: start: 2008

REACTIONS (1)
  - Autoimmune thrombocytopenia [Recovered/Resolved]
